FAERS Safety Report 9299477 (Version 1)
Quarter: 2013Q2

REPORT INFORMATION
  Report Type: Report from Study
  Country: CA (occurrence: CA)
  Receive Date: 20130521
  Receipt Date: 20130521
  Transmission Date: 20140414
  Serious: Yes (Other)
  Sender: FDA-Public Use
  Company Number: CA-ROCHE-1225495

PATIENT
  Sex: Male
  Weight: 81.6 kg

DRUGS (7)
  1. RITUXAN [Suspect]
     Indication: WARM TYPE HAEMOLYTIC ANAEMIA
     Route: 042
     Dates: start: 20130312, end: 2013
  2. RITUXAN [Suspect]
     Route: 065
     Dates: start: 20130326
  3. PREDNISONE [Concomitant]
  4. FOLIC ACID [Concomitant]
  5. VITAMIN C [Concomitant]
  6. VITAMIN D [Concomitant]
  7. CALCIUM [Concomitant]

REACTIONS (2)
  - Pneumonia [Unknown]
  - Lung disorder [Unknown]
